FAERS Safety Report 10478345 (Version 1)
Quarter: 2014Q3

REPORT INFORMATION
  Report Type: Report from Study
  Country: US (occurrence: US)
  Receive Date: 20140926
  Receipt Date: 20140926
  Transmission Date: 20150326
  Serious: Yes (Hospitalization)
  Sender: FDA-Public Use
  Company Number: US-SA-2014SA131299

PATIENT
  Age: 80 Year
  Sex: Female
  Weight: 59.9 kg

DRUGS (5)
  1. BLINDED THERAPY [Suspect]
     Active Substance: UNSPECIFIED INGREDIENT
     Indication: ADENOCARCINOMA OF COLON
     Route: 048
     Dates: start: 20140311, end: 20140614
  2. ELOXATIN [Suspect]
     Active Substance: OXALIPLATIN
     Indication: ADENOCARCINOMA OF COLON
     Dosage: FREQ: OVER 2 HR ON DAY 1
     Route: 042
     Dates: start: 20140311, end: 20140520
  3. 5-FU [Suspect]
     Active Substance: FLUOROURACIL
     Indication: ADENOCARCINOMA OF COLON
     Dosage: IVP ON DAY 1
     Route: 042
     Dates: start: 20140311
  4. LEUCOVORIN [Suspect]
     Active Substance: LEUCOVORIN
     Indication: ADENOCARCINOMA OF COLON
     Dosage: OVER 2 HR ON DAY 1
     Route: 042
     Dates: start: 20140311, end: 20140520
  5. 5-FU [Suspect]
     Active Substance: FLUOROURACIL
     Indication: ADENOCARCINOMA OF COLON
     Dosage: FREQ: 46-48 HR
     Route: 042
     Dates: start: 20140311, end: 20140520

REACTIONS (1)
  - Cerebral ischaemia [Recovered/Resolved with Sequelae]

NARRATIVE: CASE EVENT DATE: 20140614
